FAERS Safety Report 5446696-7 (Version None)
Quarter: 2007Q3

REPORT INFORMATION
  Report Type: 
  Country: None (occurrence: None)
  Receive Date: 20070907
  Receipt Date: 20070828
  Transmission Date: 20080115
  Serious: Yes (Hospitalization, Other)
  Sender: FDA-Public Use
  Company Number: FR-ABBOTT-07P-056-0415297-00

PATIENT
  Age: 35 Year
  Sex: Male
  Weight: 68.4 kg

DRUGS (4)
  1. VALPROIC ACID [Suspect]
     Indication: EPILEPSY
     Route: 048
     Dates: start: 19880101, end: 19951201
  2. VALPROIC ACID [Suspect]
     Dates: start: 19950101, end: 19951201
  3. TICLOPIDINE HYDROCHLORIDE [Concomitant]
     Indication: DRUG USE FOR UNKNOWN INDICATION
     Route: 048
     Dates: start: 19880101
  4. ENALAPRIL [Concomitant]
     Indication: DRUG USE FOR UNKNOWN INDICATION
     Dosage: NOT REPORTED
     Dates: start: 19951016

REACTIONS (3)
  - DRUG TOXICITY [None]
  - FOCAL GLOMERULOSCLEROSIS [None]
  - PANCREATITIS [None]
